FAERS Safety Report 19884834 (Version 1)
Quarter: 2021Q3

REPORT INFORMATION
  Report Type: Spontaneous
  Country: US (occurrence: US)
  Receive Date: 20210923
  Receipt Date: 20210923
  Transmission Date: 20211014
  Serious: No
  Sender: FDA-Public Use
  Company Number: None

PATIENT
  Age: 73 Year
  Sex: Male

DRUGS (1)
  1. DAPTOMYCIN (DAPTOMYCIN 500MG/VIL INJ) [Suspect]
     Active Substance: DAPTOMYCIN
     Route: 042
     Dates: start: 20210624, end: 20210628

REACTIONS (2)
  - Myalgia [None]
  - Blood creatine phosphokinase increased [None]

NARRATIVE: CASE EVENT DATE: 20210628
